FAERS Safety Report 8826207 (Version 2)
Quarter: 2012Q4

REPORT INFORMATION
  Report Type: 
  Country: IT (occurrence: IT)
  Receive Date: 20121008
  Receipt Date: 20121018
  Transmission Date: 20130627
  Serious: Yes (Other)
  Sender: FDA-Public Use
  Company Number: IT-ELI_LILLY_AND_COMPANY-IT201209007299

PATIENT
  Age: 39 Year
  Sex: Male

DRUGS (4)
  1. ZYPREXA [Suspect]
     Indication: ANXIETY
     Dosage: 5 mg, unknown
  2. ZYPREXA [Suspect]
     Dosage: 35 mg, unknown
     Dates: start: 20120906, end: 20120906
  3. STILNOX [Concomitant]
     Indication: ANXIETY
     Dosage: 10 mg, unknown
  4. STILNOX [Concomitant]
     Dosage: 70 mg, unknown

REACTIONS (3)
  - Drug abuse [Recovering/Resolving]
  - Overdose [Recovering/Resolving]
  - Off label use [Unknown]
